FAERS Safety Report 14424165 (Version 1)
Quarter: 2018Q1

REPORT INFORMATION
  Report Type: Spontaneous
  Country: US (occurrence: US)
  Receive Date: 20180122
  Receipt Date: 20180122
  Transmission Date: 20180509
  Serious: Yes (Other)
  Sender: FDA-Public Use
  Company Number: None

PATIENT
  Age: 49 Year
  Sex: Male

DRUGS (1)
  1. INSULIN [Suspect]
     Active Substance: INSULIN NOS

REACTIONS (3)
  - Accidental overdose [None]
  - Overdose [None]
  - Blood glucose decreased [None]

NARRATIVE: CASE EVENT DATE: 20180109
